FAERS Safety Report 8033823-0 (Version None)
Quarter: 2012Q1

REPORT INFORMATION
  Report Type: 
  Country: None (occurrence: None)
  Receive Date: 20120110
  Receipt Date: 20111229
  Transmission Date: 20120608
  Serious: Yes (Hospitalization, Other)
  Sender: FDA-Public Use
  Company Number: GB-UCBSA-048611

PATIENT
  Age: 9 Year
  Sex: Male
  Weight: 35.8 kg

DRUGS (4)
  1. METHYLPHENIDATE HCL [Suspect]
     Route: 048
     Dates: start: 20110525, end: 20111218
  2. CONCERTA [Concomitant]
  3. MELATONIN [Concomitant]
  4. ATOMOXETINE HCL [Suspect]
     Dosage: DOSE:40 MG
     Route: 048
     Dates: start: 20111110, end: 20111219

REACTIONS (1)
  - CONVULSION [None]
